FAERS Safety Report 6015954-X (Version None)
Quarter: 2008Q4

REPORT INFORMATION
  Report Type: 
  Country: None (occurrence: None)
  Receive Date: 20081218
  Receipt Date: 20081129
  Transmission Date: 20090506
  Serious: Yes (Other)
  Sender: FDA-Public Use
  Company Number: CERZ-1000439

PATIENT
  Age: 23 Year
  Sex: Female

DRUGS (2)
  1. CEREZYME [Suspect]
     Indication: GAUCHER'S DISEASE
     Dosage: 15 U/KG, Q2W; INTRAVENOUS, 30 U/KG, Q2W; INTRAVENOUS
     Route: 042
     Dates: start: 20060701, end: 20080701
  2. CEREZYME [Suspect]
     Indication: GAUCHER'S DISEASE
     Dosage: 15 U/KG, Q2W; INTRAVENOUS, 30 U/KG, Q2W; INTRAVENOUS
     Route: 042
     Dates: start: 20080701

REACTIONS (3)
  - ANTI-PLATELET ANTIBODY POSITIVE [None]
  - HYPERSPLENISM [None]
  - IDIOPATHIC THROMBOCYTOPENIC PURPURA [None]
